FAERS Safety Report 12675621 (Version 3)
Quarter: 2017Q3

REPORT INFORMATION
  Report Type: Spontaneous
  Country: US (occurrence: US)
  Receive Date: 20160823
  Receipt Date: 20170815
  Transmission Date: 20171127
  Serious: No
  Sender: FDA-Public Use
  Company Number: US-JAZZ-2016-US-006348

PATIENT
  Sex: Female

DRUGS (32)
  1. PERCOCET [Concomitant]
     Active Substance: ACETAMINOPHEN\OXYCODONE HYDROCHLORIDE
  2. DEXAMETHASONE. [Concomitant]
     Active Substance: DEXAMETHASONE
  3. PILOCARPINE HCL [Concomitant]
     Active Substance: PILOCARPINE HYDROCHLORIDE
  4. NEURONTIN [Concomitant]
     Active Substance: GABAPENTIN
  5. VITAMIN D [Concomitant]
     Active Substance: CHOLECALCIFEROL
  6. CARAFATE [Concomitant]
     Active Substance: SUCRALFATE
  7. SUFENTANIL [Concomitant]
     Active Substance: SUFENTANIL
  8. PREDNISONE. [Concomitant]
     Active Substance: PREDNISONE
  9. BUPIVACAINE HCL [Concomitant]
     Active Substance: BUPIVACAINE HYDROCHLORIDE
  10. VITAMIN E [Concomitant]
     Active Substance: .ALPHA.-TOCOPHEROL
  11. XYREM [Suspect]
     Active Substance: SODIUM OXYBATE
     Indication: CATAPLEXY
     Dosage: 4.25 G, BID
     Route: 048
     Dates: start: 201310
  12. TIZANIDINE HCL [Concomitant]
     Active Substance: TIZANIDINE HYDROCHLORIDE
  13. TYSABRI [Concomitant]
     Active Substance: NATALIZUMAB
  14. AMPYRA [Concomitant]
     Active Substance: DALFAMPRIDINE
  15. LORTAB [Concomitant]
     Active Substance: ACETAMINOPHEN\HYDROCODONE BITARTRATE
  16. KLONOPIN [Concomitant]
     Active Substance: CLONAZEPAM
  17. BETASERON [Concomitant]
     Active Substance: INTERFERON BETA-1B
  18. OXYBUTYNIN [Concomitant]
     Active Substance: OXYBUTYNIN
  19. ESTRADIOL. [Concomitant]
     Active Substance: ESTRADIOL
  20. CHANTIX [Concomitant]
     Active Substance: VARENICLINE TARTRATE
  21. PROVIGIL [Concomitant]
     Active Substance: MODAFINIL
  22. DIPHENHYDRAMINE. [Concomitant]
     Active Substance: DIPHENHYDRAMINE
  23. TOPAMAX [Concomitant]
     Active Substance: TOPIRAMATE
  24. AMITIZA [Concomitant]
     Active Substance: LUBIPROSTONE
  25. NUVIGIL [Concomitant]
     Active Substance: ARMODAFINIL
  26. ALEVE [Concomitant]
     Active Substance: NAPROXEN SODIUM
  27. BACLOFEN. [Concomitant]
     Active Substance: BACLOFEN
  28. VITAMIN C [Concomitant]
     Active Substance: ASCORBIC ACID
  29. ADDERALL [Concomitant]
     Active Substance: AMPHETAMINE ASPARTATE\AMPHETAMINE SULFATE\DEXTROAMPHETAMINE SACCHARATE\DEXTROAMPHETAMINE SULFATE
  30. PROBIOTIC COMPLEX [Concomitant]
  31. XYREM [Suspect]
     Active Substance: SODIUM OXYBATE
     Indication: NARCOLEPSY
     Dosage: 3 G, BID
     Route: 048
     Dates: start: 201309, end: 201310
  32. PRILOSEC [Concomitant]
     Active Substance: OMEPRAZOLE MAGNESIUM

REACTIONS (2)
  - Osteoporosis [Not Recovered/Not Resolved]
  - Osteoarthritis [Not Recovered/Not Resolved]

NARRATIVE: CASE EVENT DATE: 2015
